FAERS Safety Report 10447346 (Version 2)
Quarter: 2014Q3

REPORT INFORMATION
  Report Type: Spontaneous
  Country: KR (occurrence: KR)
  Receive Date: 20140911
  Receipt Date: 20140928
  Transmission Date: 20150326
  Serious: Yes (Hospitalization)
  Sender: FDA-Public Use
  Company Number: KR-009507513-1409KOR000560

PATIENT
  Age: 56 Year
  Sex: Male
  Weight: 58.7 kg

DRUGS (27)
  1. NORZYME [Concomitant]
     Indication: GASTROINTESTINAL DISORDER
     Dosage: 458 MG, UNK
     Route: 048
     Dates: start: 20140623, end: 20140623
  2. YAMATETAN [Concomitant]
     Indication: INFECTION PROPHYLAXIS
     Dosage: 1 G, UNK
     Route: 042
     Dates: start: 20140624, end: 20140626
  3. ROCURONIUM BROMIDE. [Suspect]
     Active Substance: ROCURONIUM BROMIDE
     Indication: GENERAL ANAESTHESIA
     Dosage: 50 MG, UNK
     Route: 042
     Dates: start: 20140624
  4. ROCURONIUM BROMIDE. [Suspect]
     Active Substance: ROCURONIUM BROMIDE
     Dosage: 10 MG, UNK
     Route: 042
     Dates: start: 20140624
  5. ROCURONIUM BROMIDE. [Suspect]
     Active Substance: ROCURONIUM BROMIDE
     Dosage: 10 MG, UNK
     Route: 042
     Dates: start: 20140624
  6. ROCURONIUM BROMIDE. [Suspect]
     Active Substance: ROCURONIUM BROMIDE
     Dosage: 10 MG, UNK
     Route: 042
     Dates: start: 20140624
  7. ROCURONIUM BROMIDE. [Suspect]
     Active Substance: ROCURONIUM BROMIDE
     Dosage: 10 MG, UNK
     Route: 042
     Dates: start: 20140624
  8. FUTHAN [Concomitant]
     Active Substance: NAFAMOSTAT MESYLATE
     Indication: CARDIOVASCULAR DISORDER
     Dosage: 10 MG, UNK
     Route: 042
     Dates: start: 20140624, end: 20140625
  9. ROCURONIUM BROMIDE. [Suspect]
     Active Substance: ROCURONIUM BROMIDE
     Dosage: 10 MG, UNK
     Route: 042
     Dates: start: 20140624
  10. ROCURONIUM BROMIDE. [Suspect]
     Active Substance: ROCURONIUM BROMIDE
     Dosage: 10 MG, UNK
     Route: 042
     Dates: start: 20140624
  11. ROCURONIUM BROMIDE. [Suspect]
     Active Substance: ROCURONIUM BROMIDE
     Dosage: 10 MG, UNK
     Route: 042
     Dates: start: 20140624
  12. URSA SOFT CAPS [Concomitant]
     Indication: LIVER DISORDER
     Dosage: 200 MG, UNK
     Route: 048
     Dates: start: 20140626, end: 20140802
  13. ROCURONIUM BROMIDE. [Suspect]
     Active Substance: ROCURONIUM BROMIDE
     Dosage: 10 MG, UNK
     Route: 042
     Dates: start: 20140624
  14. ROCURONIUM BROMIDE. [Suspect]
     Active Substance: ROCURONIUM BROMIDE
     Dosage: 10 MG, UNK
     Route: 042
     Dates: start: 20140624
  15. PHENYLEPHRINE HYDROCHLORIDE. [Concomitant]
     Active Substance: PHENYLEPHRINE HYDROCHLORIDE
     Dosage: 7 CC/HR
     Route: 042
     Dates: start: 20140624
  16. ROCURONIUM BROMIDE. [Suspect]
     Active Substance: ROCURONIUM BROMIDE
     Dosage: 10 MG, UNK
     Route: 042
     Dates: start: 20140624
  17. CITOPCIN (CIPROFLOXACIN HYDROCHLORIDE) [Concomitant]
     Active Substance: CIPROFLOXACIN HYDROCHLORIDE
     Indication: URINARY TRACT INFECTION
     Dosage: 250 MG, UNK
     Route: 048
     Dates: start: 20140629, end: 20140709
  18. ROCURONIUM BROMIDE. [Suspect]
     Active Substance: ROCURONIUM BROMIDE
     Dosage: 10 MG, UNK
     Route: 042
     Dates: start: 20140624
  19. BESZYME [Concomitant]
     Indication: GASTROINTESTINAL DISORDER
     Dosage: 470 MG, UNK
     Route: 048
     Dates: start: 20140626, end: 20140802
  20. TRASPHEN SEMI [Concomitant]
     Indication: PAIN PROPHYLAXIS
     Dosage: 362.5 MG, UNK
     Route: 048
     Dates: start: 20140627, end: 20140712
  21. BRIDION [Suspect]
     Active Substance: SUGAMMADEX
     Indication: NEUROMUSCULAR BLOCKADE
     Dosage: 2 MG/KG (DOSE: 117.4MG) FREQUENCY: 1X
     Dates: start: 20140624
  22. ROCURONIUM BROMIDE. [Suspect]
     Active Substance: ROCURONIUM BROMIDE
     Dosage: 10 MG, UNK
     Route: 042
     Dates: start: 20140624
  23. PHENYLEPHRINE HYDROCHLORIDE. [Concomitant]
     Active Substance: PHENYLEPHRINE HYDROCHLORIDE
     Indication: BLOOD PRESSURE MANAGEMENT
     Dosage: 30 MICROGRAM, UNK
     Route: 042
     Dates: start: 20140624
  24. BARACLUDE [Concomitant]
     Active Substance: ENTECAVIR
     Indication: HEPATITIS B
     Dosage: 0.5 MG, UNK
     Route: 048
     Dates: start: 20100601, end: 20140723
  25. MUCOPECT [Concomitant]
     Indication: RESPIRATORY DISORDER
     Dosage: 15 MG, UNK
     Route: 042
     Dates: start: 20140624, end: 20140626
  26. ROCURONIUM BROMIDE. [Suspect]
     Active Substance: ROCURONIUM BROMIDE
     Dosage: 10 MG, UNK
     Route: 042
     Dates: start: 20140624
  27. CURAN [Concomitant]
     Indication: GASTROINTESTINAL DISORDER
     Dosage: 50 MG, UNK
     Route: 042
     Dates: start: 20140624, end: 20140625

REACTIONS (1)
  - Urinary tract infection [Recovered/Resolved]

NARRATIVE: CASE EVENT DATE: 20140629
